FAERS Safety Report 4294093-2 (Version None)
Quarter: 2004Q1

REPORT INFORMATION
  Report Type: 
  Country: None (occurrence: None)
  Receive Date: 20040211
  Receipt Date: 20040205
  Transmission Date: 20041129
  Serious: No
  Sender: FDA-Public Use
  Company Number: 2004UW02052

PATIENT
  Age: 80 Year
  Sex: Female

DRUGS (1)
  1. SEROQUEL [Suspect]
     Dosage: NI

REACTIONS (1)
  - RENAL FAILURE [None]
